FAERS Safety Report 12568211 (Version 1)
Quarter: 2016Q3

REPORT INFORMATION
  Report Type: Spontaneous
  Country: US (occurrence: US)
  Receive Date: 20160718
  Receipt Date: 20160718
  Transmission Date: 20161109
  Serious: No
  Sender: FDA-Public Use
  Company Number: US-ELI_LILLY_AND_COMPANY-US201607004514

PATIENT
  Sex: Male

DRUGS (6)
  1. HUMALOG [Suspect]
     Active Substance: INSULIN LISPRO
     Dosage: 6 DF, AT BEDTIME
     Route: 065
  2. HUMALOG [Suspect]
     Active Substance: INSULIN LISPRO
     Indication: TYPE 2 DIABETES MELLITUS
     Dosage: 4 DF, BEFORE BREAKFAST
     Route: 065
     Dates: start: 201511
  3. HUMALOG [Suspect]
     Active Substance: INSULIN LISPRO
     Dosage: 6 DF, AT BEDTIME
     Route: 065
     Dates: start: 201511
  4. HUMALOG [Suspect]
     Active Substance: INSULIN LISPRO
     Dosage: 5 DF, AT LUNCH
     Route: 065
  5. HUMALOG [Suspect]
     Active Substance: INSULIN LISPRO
     Dosage: 5 DF, AT LUNCH
     Route: 065
     Dates: start: 201511
  6. HUMALOG [Suspect]
     Active Substance: INSULIN LISPRO
     Dosage: 4 DF, BEFORE BREAKFAST
     Route: 065

REACTIONS (2)
  - Incorrect dose administered [Unknown]
  - Incorrect dose administered [Unknown]

NARRATIVE: CASE EVENT DATE: 201606
